FAERS Safety Report 10046923 (Version 2)
Quarter: 2014Q2

REPORT INFORMATION
  Report Type: Spontaneous
  Country: IT (occurrence: IT)
  Receive Date: 20140331
  Receipt Date: 20140403
  Transmission Date: 20141212
  Serious: Yes (Hospitalization)
  Sender: FDA-Public Use
  Company Number: IT-ELI_LILLY_AND_COMPANY-IT201403007814

PATIENT
  Age: 17 Year
  Sex: Female

DRUGS (3)
  1. ZYPREXA [Suspect]
     Indication: DRUG ABUSE
     Dosage: 5 MG, UNK
     Route: 048
     Dates: start: 20140130, end: 20140130
  2. TAVOR                              /00273201/ [Suspect]
     Indication: SLEEP DISORDER
     Dosage: 5 MG, EACH EVENING
     Route: 065
     Dates: start: 20140130, end: 20140130
  3. XANAX [Suspect]
     Indication: DRUG ABUSE
     Dosage: 10 GTT, UNK
     Route: 048
     Dates: start: 20140130, end: 20140130

REACTIONS (3)
  - Sopor [Recovered/Resolved]
  - Drug abuse [Recovered/Resolved]
  - Intentional product misuse [Recovered/Resolved]
